FAERS Safety Report 9052675 (Version 1)
Quarter: 2013Q1

REPORT INFORMATION
  Report Type: Spontaneous
  Country: US (occurrence: US)
  Receive Date: 20130207
  Receipt Date: 20130207
  Transmission Date: 20140127
  Serious: No
  Sender: FDA-Public Use
  Company Number: US-PFIZER INC-2013049189

PATIENT
  Age: 49 Year
  Sex: Female
  Weight: 54.42 kg

DRUGS (2)
  1. LYRICA [Suspect]
     Indication: PARAESTHESIA
     Dosage: 75 MG, DAILY
     Dates: start: 2012, end: 20130106
  2. LYRICA [Suspect]
     Indication: RESTLESS LEGS SYNDROME

REACTIONS (1)
  - Insomnia [Not Recovered/Not Resolved]
